FAERS Safety Report 11695494 (Version 1)
Quarter: 2015Q4

REPORT INFORMATION
  Report Type: Report from Study
  Country: US (occurrence: US)
  Receive Date: 20151104
  Receipt Date: 20151104
  Transmission Date: 20160304
  Serious: No
  Sender: FDA-Public Use
  Company Number: US-AMGEN-USASL2015113459

PATIENT
  Age: 55 Year
  Sex: Male

DRUGS (1)
  1. ENBREL [Suspect]
     Active Substance: ETANERCEPT
     Indication: REITER^S SYNDROME
     Dosage: UNK UNK, 2 TIMES/WK
     Route: 065
     Dates: start: 20000101

REACTIONS (3)
  - Pain [Unknown]
  - Inappropriate schedule of drug administration [Unknown]
  - Off label use [Unknown]
